FAERS Safety Report 21129467 (Version 1)
Quarter: 2022Q3

REPORT INFORMATION
  Report Type: Spontaneous
  Country: AR (occurrence: AR)
  Receive Date: 20220726
  Receipt Date: 20220726
  Transmission Date: 20221026
  Serious: Yes (Other)
  Sender: FDA-Public Use
  Company Number: AR-TAKEDA-2022TUS049220

PATIENT
  Age: 72 Year
  Sex: Male

DRUGS (3)
  1. BORTEZOMIB [Suspect]
     Active Substance: BORTEZOMIB
     Indication: Plasma cell myeloma refractory
     Dosage: 1.3 MILLIGRAM/SQ. METER
     Route: 065
     Dates: start: 20200205, end: 20210316
  2. DEXAMETHASONE [Suspect]
     Active Substance: DEXAMETHASONE
     Indication: Plasma cell myeloma refractory
     Dosage: 40 MILLIGRAM, 1/WEEK
     Route: 065
     Dates: start: 20200205, end: 20210316
  3. SELINEXOR [Suspect]
     Active Substance: SELINEXOR
     Indication: Plasma cell myeloma refractory
     Dosage: 80 MILLIGRAM, 1/WEEK
     Route: 065
     Dates: start: 20200205, end: 20210316

REACTIONS (4)
  - Plasma cell myeloma [Unknown]
  - Thrombocytopenia [Unknown]
  - Nausea [Unknown]
  - Therapy partial responder [Unknown]
